FAERS Safety Report 22353710 (Version 1)
Quarter: 2023Q2

REPORT INFORMATION
  Report Type: Other
  Country: CA (occurrence: CA)
  Receive Date: 20230523
  Receipt Date: 20230523
  Transmission Date: 20230722
  Serious: Yes (Disabling)
  Sender: FDA-Public Use
  Company Number: CA-GLENMARK PHARMACEUTICALS-2023GMK080068

PATIENT

DRUGS (2)
  1. TOPIRAMATE [Suspect]
     Active Substance: TOPIRAMATE
     Indication: Migraine
     Dosage: UNK
     Route: 065
  2. TOPIRAMATE [Suspect]
     Active Substance: TOPIRAMATE
     Dosage: 37.5 MILLIGRAM. 1 EVERY 1 DAY
     Route: 048

REACTIONS (4)
  - Brain fog [Recovered/Resolved]
  - Drug intolerance [Recovered/Resolved]
  - Confusional state [Recovered/Resolved]
  - Drug ineffective [Unknown]
